FAERS Safety Report 7750176-3 (Version None)
Quarter: 2011Q3

REPORT INFORMATION
  Report Type: 
  Country: None (occurrence: None)
  Receive Date: 20110914
  Receipt Date: 20110914
  Transmission Date: 20111222
  Serious: No
  Sender: FDA-Public Use
  Company Number: None

PATIENT
  Age: 59 Year
  Sex: Female
  Weight: 65.77 kg

DRUGS (1)
  1. LATUDA [Suspect]
     Indication: DEPRESSION
     Dosage: 40MG
     Route: 048
     Dates: start: 20110902, end: 20110908

REACTIONS (7)
  - PRURITUS [None]
  - DYSPNOEA [None]
  - URTICARIA [None]
  - CHEST DISCOMFORT [None]
  - RASH [None]
  - HYPERSENSITIVITY [None]
  - THROAT TIGHTNESS [None]
